FAERS Safety Report 4431047-7 (Version None)
Quarter: 2004Q3

REPORT INFORMATION
  Report Type: 
  Country: None (occurrence: None)
  Receive Date: 20040824
  Receipt Date: 20030825
  Transmission Date: 20050211
  Serious: Yes (Other)
  Sender: FDA-Public Use
  Company Number: US-BRISTOL-MYERS SQUIBB COMPANY-12365391

PATIENT
  Age: 62 Year
  Sex: Male
  Weight: 64 kg

DRUGS (20)
  1. MUCOMYST [Suspect]
     Indication: OVERDOSE
     Route: 048
     Dates: start: 20030825, end: 20030825
  2. ALBUTEROL [Concomitant]
     Dosage: EVERY 4 HOURS.
     Route: 055
     Dates: start: 20030823
  3. THIAMINE [Concomitant]
     Dosage: ORAL OR INTRAMUSCULARLY.
     Dates: start: 20030823
  4. PHENERGAN HCL [Concomitant]
     Dosage: DOSE VALUE: 12.5-25 MG EVERY 4 HOURS.
     Route: 054
     Dates: start: 20030801
  5. PHENERGAN HCL [Concomitant]
     Dosage: 12.5-25 MG EVERY 4 HOURS ORALLY OR INTRAVENOUSLY.
     Route: 048
  6. PHENOBARBITAL TAB [Concomitant]
     Dosage: DOSE VALUE: 130-260 MG
     Route: 030
  7. PHENOBARBITAL TAB [Concomitant]
     Dates: start: 20030824, end: 20030826
  8. PHENOBARBITAL TAB [Concomitant]
     Route: 048
  9. OXYCONTIN [Concomitant]
     Dosage: DOSE VALUE 5-10 MG EVERY FOURS HOURS.  IMMEDIATE RELEASE FORM.
  10. MULTI-VITAMIN [Concomitant]
     Dates: start: 20030823
  11. MORPHINE SULFATE [Concomitant]
     Dosage: DOSE VALUE: 2-4 MG EVERY 4 HOURS AS NEEDED.
     Route: 042
  12. FLAGYL [Concomitant]
     Route: 042
     Dates: start: 20030823
  13. ATIVAN [Concomitant]
     Dosage: DOSE VALUE: 0.5-1.0 MG EVERY 4 HOURS AS NEED.
     Dates: start: 20030823
  14. INSULIN [Concomitant]
  15. FOLIC ACID [Concomitant]
     Dosage: ROUTE OF ADMINISTRATION:  INTRAVENOUS OR ORAL OR INTRAMUSCULARLY.
  16. PEPCID [Concomitant]
     Route: 048
     Dates: start: 20030824
  17. LOVENOX [Concomitant]
     Dates: start: 20030823
  18. CLONIDINE HCL [Concomitant]
     Dosage: CLONIDINE TTS PATCH
     Dates: start: 20030824
  19. CLONIDINE HCL [Concomitant]
     Dosage: EVERY 4 HOURS
  20. ROCEPHIN [Concomitant]

REACTIONS (2)
  - DIARRHOEA [None]
  - OVERDOSE [None]
